FAERS Safety Report 10401107 (Version 1)
Quarter: 2014Q3

REPORT INFORMATION
  Report Type: Spontaneous
  Country: GB (occurrence: GB)
  Receive Date: 20140822
  Receipt Date: 20140822
  Transmission Date: 20150326
  Serious: Yes (Other)
  Sender: FDA-Public Use
  Company Number: GB-ACCORD-025404

PATIENT
  Age: 70 Year
  Sex: Male
  Weight: 84 kg

DRUGS (13)
  1. TADALAFIL [Concomitant]
     Active Substance: TADALAFIL
  2. CLENIL MODULITE [Concomitant]
     Active Substance: BECLOMETHASONE DIPROPIONATE
  3. ZINC OXIDE. [Concomitant]
     Active Substance: ZINC OXIDE
  4. SALBUTAMOL [Concomitant]
     Active Substance: ALBUTEROL
  5. ATORVASTATIN [Suspect]
     Active Substance: ATORVASTATIN
     Indication: BLOOD CHOLESTEROL INCREASED
  6. SIMVASTATIN. [Suspect]
     Active Substance: SIMVASTATIN
     Indication: BLOOD CHOLESTEROL INCREASED
  7. LANTUS [Concomitant]
     Active Substance: INSULIN GLARGINE
  8. BIMATOPROST [Concomitant]
     Active Substance: BIMATOPROST
  9. UBIDECARENONE [Concomitant]
     Active Substance: UBIDECARENONE
  10. NOVORAPID [Concomitant]
     Active Substance: INSULIN ASPART
  11. LANSOPRAZOLE. [Concomitant]
     Active Substance: LANSOPRAZOLE
  12. DOCOSAHEXANOIC ACID/EICOSAPENTAENOIC ACID [Concomitant]
     Dosage: OMEGA-3 ACIDS
  13. RAMIPRIL. [Concomitant]
     Active Substance: RAMIPRIL

REACTIONS (4)
  - Headache [Recovered/Resolved]
  - Myalgia [Recovered/Resolved]
  - Eructation [Recovered/Resolved]
  - Nausea [Recovered/Resolved]

NARRATIVE: CASE EVENT DATE: 20120707
